FAERS Safety Report 9205255 (Version 3)
Quarter: 2014Q1

REPORT INFORMATION
  Report Type: Spontaneous
  Country: IE (occurrence: IE)
  Receive Date: 20130402
  Receipt Date: 20140218
  Transmission Date: 20141002
  Serious: Yes (Other)
  Sender: FDA-Public Use
  Company Number: IE-MYLANLABS-2013S1006452

PATIENT
  Age: 35 Year
  Sex: Female

DRUGS (1)
  1. CITALOPRAM [Suspect]
     Indication: ANXIETY
     Route: 048
     Dates: start: 20121223, end: 20131003

REACTIONS (26)
  - Restlessness [Recovered/Resolved]
  - Tremor [Recovered/Resolved]
  - Anxiety [Recovered/Resolved]
  - Panic attack [Recovered/Resolved]
  - Apathy [Recovered/Resolved]
  - Palpitations [Not Recovered/Not Resolved]
  - Abnormal dreams [Recovered/Resolved]
  - Disturbance in attention [Recovered/Resolved]
  - Vision blurred [Recovered/Resolved]
  - Dysarthria [Recovered/Resolved]
  - Exophthalmos [Recovered/Resolved]
  - Feeling abnormal [Recovered/Resolved]
  - Nausea [Recovered/Resolved]
  - Yawning [Recovered/Resolved]
  - Dry mouth [Recovered/Resolved]
  - Bruxism [Recovered/Resolved]
  - Abdominal pain upper [Recovered/Resolved]
  - Dysgeusia [Recovered/Resolved]
  - Somnolence [Recovered/Resolved]
  - Pre-existing condition improved [Recovered/Resolved]
  - Insomnia [Recovered/Resolved]
  - Libido decreased [Recovered/Resolved]
  - Anorgasmia [Recovered/Resolved]
  - Dry skin [Recovered/Resolved]
  - Pruritus [Recovered/Resolved]
  - Menstruation irregular [Recovered/Resolved]
